FAERS Safety Report 5033141-9 (Version None)
Quarter: 2006Q2

REPORT INFORMATION
  Report Type: 
  Country: None (occurrence: None)
  Receive Date: 20060505
  Receipt Date: 20060103
  Transmission Date: 20061013
  Serious: Yes (Other)
  Sender: FDA-Public Use
  Company Number: PHEH2006US00502

PATIENT
  Age: 60 Year
  Sex: Female

DRUGS (3)
  1. DIOVAN HCT [Suspect]
     Indication: HYPERTENSION
     Dosage: 160/12.5 MG, 1.5 QD
     Dates: start: 20040101
  2. LASIX [Concomitant]
  3. POTASSIUM (POTASSIUM) [Concomitant]

REACTIONS (3)
  - BLOOD POTASSIUM INCREASED [None]
  - DEHYDRATION [None]
  - OEDEMA PERIPHERAL [None]
